FAERS Safety Report 15318494 (Version 1)
Quarter: 2018Q3

REPORT INFORMATION
  Report Type: Spontaneous
  Country: US (occurrence: US)
  Receive Date: 20180817
  Receipt Date: 20180817
  Transmission Date: 20181010
  Serious: No
  Sender: FDA-Public Use
  Company Number: None

PATIENT
  Age: 86 Year
  Sex: Female

DRUGS (6)
  1. XGEVA [Concomitant]
     Active Substance: DENOSUMAB
  2. FASLODEX [Concomitant]
     Active Substance: FULVESTRANT
  3. ELIQUIS [Concomitant]
     Active Substance: APIXABAN
  4. IBRANCE [Suspect]
     Active Substance: PALBOCICLIB
     Indication: BREAST CANCER FEMALE
     Route: 048
     Dates: start: 20160831
  5. ROPINIROLE. [Concomitant]
     Active Substance: ROPINIROLE
  6. TOPROL XL [Concomitant]
     Active Substance: METOPROLOL SUCCINATE

REACTIONS (2)
  - Sepsis [None]
  - Drug dose omission [None]

NARRATIVE: CASE EVENT DATE: 2018
